FAERS Safety Report 12363710 (Version 1)
Quarter: 2016Q2

REPORT INFORMATION
  Report Type: Spontaneous
  Country: US (occurrence: US)
  Receive Date: 20160512
  Receipt Date: 20160512
  Transmission Date: 20160815
  Serious: No
  Sender: FDA-Public Use
  Company Number: US-BIOGEN-2016BI00235153

PATIENT

DRUGS (1)
  1. TECFIDERA [Suspect]
     Active Substance: DIMETHYL FUMARATE
     Indication: MULTIPLE SCLEROSIS

REACTIONS (6)
  - Diverticulitis [Unknown]
  - Therapy cessation [Unknown]
  - Nasopharyngitis [Unknown]
  - Infection [Unknown]
  - Oropharyngeal pain [Unknown]
  - Blood count abnormal [Unknown]
